FAERS Safety Report 7399729-5 (Version None)
Quarter: 2011Q2

REPORT INFORMATION
  Report Type: 
  Country: None (occurrence: None)
  Receive Date: 20110407
  Receipt Date: 20110404
  Transmission Date: 20111010
  Serious: Yes (Death, Hospitalization)
  Sender: FDA-Public Use
  Company Number: FR-SANOFI-AVENTIS-2011SA020109

PATIENT
  Age: 41 Year
  Sex: Female

DRUGS (3)
  1. FLUOROURACIL [Suspect]
     Indication: COLON CANCER
     Route: 042
     Dates: start: 20100201, end: 20100202
  2. ELVORINE [Suspect]
     Indication: COLON CANCER
     Route: 042
     Dates: start: 20100201, end: 20100202
  3. ELOXATIN [Suspect]
     Indication: COLON CANCER
     Route: 042
     Dates: start: 20100201, end: 20100202

REACTIONS (2)
  - PANCYTOPENIA [None]
  - ALOPECIA [None]
